FAERS Safety Report 21017155 (Version 1)
Quarter: 2022Q2

REPORT INFORMATION
  Report Type: Spontaneous
  Country: US (occurrence: None)
  Receive Date: 20220627
  Receipt Date: 20220627
  Transmission Date: 20220721
  Serious: No
  Sender: FDA-Public Use
  Company Number: None

PATIENT
  Age: 88 Year
  Sex: Female

DRUGS (1)
  1. TRESIBA [Suspect]
     Active Substance: INSULIN DEGLUDEC
     Dosage: OTHER STRENGTH : 100U/ML;?FREQUENCY : DAILY;?
     Route: 058

REACTIONS (2)
  - Blood glucose increased [None]
  - Injection related reaction [None]

NARRATIVE: CASE EVENT DATE: 20220414
